FAERS Safety Report 6212769-4 (Version None)
Quarter: 2009Q2

REPORT INFORMATION
  Report Type: 
  Country: None (occurrence: None)
  Receive Date: 20090603
  Receipt Date: 20090601
  Transmission Date: 20091009
  Serious: Yes (Death, Other)
  Sender: FDA-Public Use
  Company Number: GB-JNJFOC-20090600213

PATIENT
  Age: 19 Year

DRUGS (6)
  1. ITRACONAZOLE [Suspect]
     Indication: ANTIFUNGAL PROPHYLAXIS
     Route: 065
  2. BUSULPHAN [Suspect]
     Indication: STEM CELL TRANSPLANT
     Route: 065
  3. CAMPATH [Suspect]
     Indication: STEM CELL TRANSPLANT
     Route: 065
  4. CYCLOSPORINE [Suspect]
     Indication: PROPHYLAXIS AGAINST GRAFT VERSUS HOST DISEASE
     Route: 065
  5. CO-TRIMOXAZOLE [Suspect]
     Indication: STEM CELL TRANSPLANT
     Route: 065
  6. MELPHALAN [Suspect]
     Indication: STEM CELL TRANSPLANT
     Route: 065

REACTIONS (2)
  - DRUG INEFFECTIVE [None]
  - PNEUMONITIS [None]
